FAERS Safety Report 8141272-X (Version None)
Quarter: 2012Q1

REPORT INFORMATION
  Report Type: 
  Country: None (occurrence: None)
  Receive Date: 20120103
  Receipt Date: 20111116
  Transmission Date: 20120608
  Serious: No
  Sender: FDA-Public Use
  Company Number: AE-2011-001662

PATIENT
  Age: 59 Year
  Sex: Female
  Weight: 89.8122 kg

DRUGS (19)
  1. INCIVEK [Suspect]
     Dosage: 2250 MG (750 MG, 1 IN 8 HR), ORAL
     Route: 048
     Dates: start: 20110915
  2. TIZANIDINE HCL (TIZANIDINE) [Concomitant]
  3. OMEPRAZOLE [Concomitant]
  4. MULTI-VITAMINS [Concomitant]
  5. LISINOPRIL [Concomitant]
  6. RANITIDINE HYDROCHLORIDE [Concomitant]
  7. CALCIUM CARBONATE [Concomitant]
  8. PEGASYS (PEGINTERFERON ALFA-2A) RI [Concomitant]
  9. LEXAPRO [Concomitant]
  10. MILK THISTLE (SILYBUM MARIANUM) [Concomitant]
  11. BAVIRIN (RIBAVIRIN) [Concomitant]
  12. SYNTHROID [Concomitant]
  13. BLACK COHOSH (CIMICIFUGA RACEMOSA ROOT) [Concomitant]
  14. HYDROXYZINE [Concomitant]
  15. LOVAZA [Concomitant]
  16. ASPIRIN [Concomitant]
  17. NAPROSYN [Concomitant]
  18. TRAMADOL HCL [Concomitant]
  19. VITAMIN D [Concomitant]

REACTIONS (3)
  - ANORECTAL DISCOMFORT [None]
  - INAPPROPRIATE SCHEDULE OF DRUG ADMINISTRATION [None]
  - PROCTALGIA [None]
